FAERS Safety Report 5102973-0 (Version None)
Quarter: 2006Q3

REPORT INFORMATION
  Report Type: 
  Country: None (occurrence: None)
  Receive Date: 20060907
  Receipt Date: 20060830
  Transmission Date: 20061208
  Serious: Yes (Hospitalization)
  Sender: FDA-Public Use
  Company Number: CAWYE747621AUG06

PATIENT
  Age: 75 Year
  Sex: Female

DRUGS (9)
  1. EFFEXOR XR [Suspect]
     Indication: DEPRESSION
     Dosage: ORAL
     Route: 048
  2. OXYCODONE HCL [Concomitant]
  3. CELEBREX [Concomitant]
  4. SYNTHROID [Concomitant]
  5. ESTRACE [Concomitant]
  6. SEROQUEL [Concomitant]
  7. COLACE (DOCUSATE SODIUM) [Concomitant]
  8. CALCIUM (CALCIUM) [Concomitant]
  9. VITAMIN D [Concomitant]

REACTIONS (8)
  - APHONIA [None]
  - CONDITION AGGRAVATED [None]
  - DEPRESSION [None]
  - DISEASE RECURRENCE [None]
  - NECK PAIN [None]
  - PSYCHIATRIC SYMPTOM [None]
  - SUICIDAL IDEATION [None]
  - WEIGHT DECREASED [None]
